FAERS Safety Report 7150250-9 (Version None)
Quarter: 2010Q4

REPORT INFORMATION
  Report Type: 
  Country: None (occurrence: None)
  Receive Date: 20101123
  Receipt Date: 20101117
  Transmission Date: 20110411
  Serious: Yes (Hospitalization)
  Sender: FDA-Public Use
  Company Number: 2010SP050253

PATIENT
  Age: 58 Year
  Sex: Female

DRUGS (8)
  1. SAPHRIS [Suspect]
     Indication: SCHIZOAFFECTIVE DISORDER
     Dosage: 10 MG; BID; SL
     Route: 060
     Dates: start: 20100914
  2. GEODON [Suspect]
     Indication: PRODUCT USED FOR UNKNOWN INDICATION
  3. TRIAMTERENE AND HYDROCHLOROTHIAZIDE [Concomitant]
  4. BENAZEPRIL HYDROCHLORIDE [Concomitant]
  5. HYDROXYZINE HCL [Concomitant]
  6. SYNTHROID [Concomitant]
  7. VISTARIL [Concomitant]
  8. DIAZIDE [Concomitant]

REACTIONS (6)
  - ARRHYTHMIA [None]
  - ARTHRALGIA [None]
  - GROIN PAIN [None]
  - MUSCULOSKELETAL PAIN [None]
  - PAIN IN EXTREMITY [None]
  - REFUSAL OF TREATMENT BY PATIENT [None]
